FAERS Safety Report 11896883 (Version 1)
Quarter: 2016Q1

REPORT INFORMATION
  Report Type: Spontaneous
  Country: US (occurrence: US)
  Receive Date: 20160107
  Receipt Date: 20160107
  Transmission Date: 20160526
  Serious: No
  Sender: FDA-Public Use
  Company Number: US-ALLERGAN-1503391US

PATIENT
  Sex: Female
  Weight: 70.3 kg

DRUGS (2)
  1. ACZONE [Suspect]
     Active Substance: DAPSONE
     Indication: ACNE
     Dosage: UNK, QAM
     Route: 061
     Dates: end: 20150201
  2. EPIDUO [Suspect]
     Active Substance: ADAPALENE\BENZOYL PEROXIDE
     Indication: ACNE
     Dosage: UNK
     Dates: start: 20140818, end: 201412

REACTIONS (4)
  - Erythema [Unknown]
  - Dry skin [Unknown]
  - Mood swings [Unknown]
  - Inappropriate schedule of drug administration [Unknown]
